FAERS Safety Report 17327673 (Version 1)
Quarter: 2020Q1

REPORT INFORMATION
  Report Type: Spontaneous
  Country: FR (occurrence: FR)
  Receive Date: 20200127
  Receipt Date: 20200127
  Transmission Date: 20200409
  Serious: Yes (Hospitalization)
  Sender: FDA-Public Use
  Company Number: FR-JNJFOC-20200129470

PATIENT
  Age: 17 Year
  Sex: Female

DRUGS (4)
  1. LYSANXIA [Suspect]
     Active Substance: PRAZEPAM
     Indication: MENTAL DISORDER
     Route: 048
     Dates: start: 20190604
  2. RISPERDAL [Concomitant]
     Active Substance: RISPERIDONE
     Route: 048
     Dates: start: 20190803, end: 20190812
  3. XEPLION [Suspect]
     Active Substance: PALIPERIDONE PALMITATE
     Indication: MENTAL DISORDER
     Route: 030
     Dates: start: 20190812
  4. NOZINAN                            /00038601/ [Suspect]
     Active Substance: LEVOMEPROMAZINE
     Indication: MENTAL DISORDER
     Route: 048
     Dates: start: 20190805

REACTIONS (3)
  - Product use issue [Unknown]
  - Off label use [Unknown]
  - Autoimmune thyroiditis [Not Recovered/Not Resolved]

NARRATIVE: CASE EVENT DATE: 20190911
